FAERS Safety Report 8196649-3 (Version None)
Quarter: 2012Q1

REPORT INFORMATION
  Report Type: 
  Country: None (occurrence: None)
  Receive Date: 20120229
  Receipt Date: 20110110
  Transmission Date: 20120608
  Serious: Yes (Hospitalization)
  Sender: FDA-Public Use
  Company Number: 010614

PATIENT
  Age: 50 Year
  Sex: Female

DRUGS (1)
  1. SAMSCA [Suspect]

REACTIONS (1)
  - HYPERGLYCAEMIA [None]
